FAERS Safety Report 23405620 (Version 1)
Quarter: 2024Q1

REPORT INFORMATION
  Report Type: Spontaneous
  Country: CO (occurrence: CO)
  Receive Date: 20240116
  Receipt Date: 20240116
  Transmission Date: 20240410
  Serious: Yes (Death)
  Sender: FDA-Public Use
  Company Number: CO-PFIZER INC-PV202400004598

PATIENT
  Age: 50 Year
  Sex: Female

DRUGS (1)
  1. VYNDAMAX [Suspect]
     Active Substance: TAFAMIDIS
     Dosage: 61 MG, DAILY
     Route: 048
     Dates: start: 20230911, end: 20231209

REACTIONS (1)
  - Death [Fatal]

NARRATIVE: CASE EVENT DATE: 20240109
